FAERS Safety Report 8333908-5 (Version None)
Quarter: 2012Q2

REPORT INFORMATION
  Report Type: 
  Country: None (occurrence: None)
  Receive Date: 20120503
  Receipt Date: 20120424
  Transmission Date: 20120825
  Serious: Yes (Hospitalization)
  Sender: FDA-Public Use
  Company Number: ES-ASTRAZENECA-2012SE26969

PATIENT
  Age: 54 Year
  Sex: Male

DRUGS (1)
  1. OMEPRAZOLE [Suspect]
     Dosage: DAILY
     Route: 048
     Dates: start: 20020101

REACTIONS (7)
  - TREMOR [None]
  - GAIT DISTURBANCE [None]
  - MALAISE [None]
  - MUSCULAR WEAKNESS [None]
  - HYPOMAGNESAEMIA [None]
  - VOMITING [None]
  - DIARRHOEA [None]
